FAERS Safety Report 9172443 (Version 1)
Quarter: 2013Q1

REPORT INFORMATION
  Report Type: Report from Study
  Country: DE (occurrence: DE)
  Receive Date: 20130319
  Receipt Date: 20130319
  Transmission Date: 20140127
  Serious: Yes (Death, Hospitalization, Other)
  Sender: FDA-Public Use
  Company Number: DE-CUBIST PHARMACEUTICAL, INC.-2013CBST000200

PATIENT
  Age: 73 Year
  Sex: Male
  Weight: 65 kg

DRUGS (2)
  1. CUBICIN [Suspect]
     Indication: ENTEROCOCCAL INFECTION
     Dosage: 12 MG/KG, Q24H
     Route: 065
     Dates: start: 20130102, end: 20130122
  2. CUBICIN [Suspect]
     Indication: OFF LABEL USE

REACTIONS (4)
  - Blood creatinine increased [Unknown]
  - Hepatic failure [Fatal]
  - Fungal infection [Unknown]
  - Drug resistance [Unknown]
